FAERS Safety Report 4980908-9 (Version None)
Quarter: 2006Q2

REPORT INFORMATION
  Report Type: 
  Country: None (occurrence: None)
  Receive Date: 20060418
  Receipt Date: 20060406
  Transmission Date: 20061013
  Serious: Yes (Other)
  Sender: FDA-Public Use
  Company Number: 2006049209

PATIENT
  Age: 26 Year
  Sex: Female

DRUGS (1)
  1. DILANTIN [Suspect]
     Indication: ILL-DEFINED DISORDER

REACTIONS (1)
  - CONVULSION [None]
